FAERS Safety Report 5162505-8 (Version None)
Quarter: 2006Q4

REPORT INFORMATION
  Report Type: 
  Country: None (occurrence: None)
  Receive Date: 20061129
  Receipt Date: 20061129
  Transmission Date: 20070319
  Serious: Yes (Life-Threatening, Hospitalization)
  Sender: FDA-Public Use
  Company Number: None

PATIENT
  Sex: Female
  Weight: 79.3795 kg

DRUGS (1)
  1. AVASTIN [Suspect]
     Indication: ENDOMETRIAL CANCER METASTATIC
     Dosage: 1200 MG EVERY 3 WKS IV
     Route: 042
     Dates: start: 20060701, end: 20061101

REACTIONS (1)
  - LARGE INTESTINE PERFORATION [None]
